FAERS Safety Report 4319212-0 (Version None)
Quarter: 2004Q1

REPORT INFORMATION
  Report Type: 
  Country: None (occurrence: None)
  Receive Date: 20040316
  Receipt Date: 20040303
  Transmission Date: 20041129
  Serious: No
  Sender: FDA-Public Use
  Company Number: CA_040306711

PATIENT
  Age: 22 Year

DRUGS (1)
  1. ZYPREXA [Suspect]

REACTIONS (1)
  - RETINAL HAEMORRHAGE [None]
